FAERS Safety Report 7378601-0 (Version None)
Quarter: 2011Q1

REPORT INFORMATION
  Report Type: 
  Country: None (occurrence: None)
  Receive Date: 20110328
  Receipt Date: 20110322
  Transmission Date: 20110831
  Serious: Yes (Death)
  Sender: FDA-Public Use
  Company Number: IE-PFIZER INC-2011063101

PATIENT
  Age: 55 Year
  Sex: Male

DRUGS (2)
  1. AMBISOME [Suspect]
     Indication: ASPERGILLOSIS
  2. VFEND [Suspect]
     Indication: ASPERGILLOSIS
     Route: 042

REACTIONS (2)
  - GENERAL PHYSICAL HEALTH DETERIORATION [None]
  - HAEMORRHAGE [None]
